FAERS Safety Report 9663706 (Version 1)
Quarter: 2013Q4

REPORT INFORMATION
  Report Type: Report from Study
  Country: US (occurrence: US)
  Receive Date: 20131101
  Receipt Date: 20131101
  Transmission Date: 20140711
  Serious: No
  Sender: FDA-Public Use
  Company Number: PHEH2013US022416

PATIENT
  Sex: Male

DRUGS (10)
  1. TASIGNA [Suspect]
     Indication: CHRONIC MYELOID LEUKAEMIA
     Dosage: 300 MG, BID
     Route: 048
     Dates: start: 201306
  2. PROTONIX [Concomitant]
  3. LOSARTAN [Concomitant]
  4. POTASSIUM [Concomitant]
  5. DILTIAZEM [Concomitant]
  6. PRAVASTATIN [Concomitant]
  7. AMIODARONE HCL [Concomitant]
  8. CLONIDINE [Concomitant]
  9. METOPROLOL TARTRATE [Concomitant]
  10. WARFARIN [Concomitant]

REACTIONS (1)
  - Pruritus [Unknown]
